FAERS Safety Report 8138884-6 (Version None)
Quarter: 2012Q1

REPORT INFORMATION
  Report Type: 
  Country: None (occurrence: None)
  Receive Date: 20120215
  Receipt Date: 20120209
  Transmission Date: 20120608
  Serious: Yes (Hospitalization)
  Sender: FDA-Public Use
  Company Number: US-GILEAD-2011-0039150

PATIENT
  Sex: Female

DRUGS (1)
  1. LETAIRIS [Suspect]
     Indication: PULMONARY HYPERTENSION
     Route: 048
     Dates: start: 20080616

REACTIONS (4)
  - OXYGEN SATURATION DECREASED [None]
  - PNEUMONIA [None]
  - FATIGUE [None]
  - BODY TEMPERATURE INCREASED [None]
